FAERS Safety Report 18330257 (Version 3)
Quarter: 2020Q4

REPORT INFORMATION
  Report Type: Spontaneous
  Country: US (occurrence: US)
  Receive Date: 20200930
  Receipt Date: 20201113
  Transmission Date: 20210113
  Serious: Yes (Hospitalization, Other)
  Sender: FDA-Public Use
  Company Number: US-CATALYST PHARMACEUTICALS, INC-2020CAT00507

PATIENT
  Age: 81 Year
  Sex: Female
  Weight: 63.49 kg

DRUGS (3)
  1. IVIG [Suspect]
     Active Substance: HUMAN IMMUNOGLOBULIN G
  2. PREDNISONE. [Concomitant]
     Active Substance: PREDNISONE
     Dosage: 10 MG
  3. FIRDAPSE [Suspect]
     Active Substance: AMIFAMPRIDINE PHOSPHATE
     Indication: MYASTHENIC SYNDROME
     Dosage: 15 MG, 4X/DAY
     Route: 048
     Dates: start: 20200319

REACTIONS (6)
  - Retching [Recovered/Resolved]
  - Urinary retention [Recovering/Resolving]
  - Vomiting [Recovered/Resolved]
  - Cerebellar stroke [Recovering/Resolving]
  - Cystitis [Recovered/Resolved]
  - Malaise [Unknown]

NARRATIVE: CASE EVENT DATE: 202009
